FAERS Safety Report 7384538-3 (Version None)
Quarter: 2011Q1

REPORT INFORMATION
  Report Type: 
  Country: None (occurrence: None)
  Receive Date: 20110330
  Receipt Date: 20110323
  Transmission Date: 20110831
  Serious: No
  Sender: FDA-Public Use
  Company Number: US-PFIZER INC-2011065656

PATIENT
  Sex: Male

DRUGS (2)
  1. FLUOXETINE [Suspect]
     Dosage: UNK
  2. CELEBREX [Suspect]
     Dosage: 200 MG, 1X/DAY

REACTIONS (1)
  - BALANCE DISORDER [None]
